FAERS Safety Report 7276005-2 (Version None)
Quarter: 2011Q1

REPORT INFORMATION
  Report Type: 
  Country: None (occurrence: None)
  Receive Date: 20110204
  Receipt Date: 20110125
  Transmission Date: 20110831
  Serious: Yes (Hospitalization)
  Sender: FDA-Public Use
  Company Number: B0692992A

PATIENT
  Age: 52 Year
  Sex: Male

DRUGS (24)
  1. MIRTAZAPINE [Concomitant]
     Dates: start: 20080303
  2. DEPO-TESTOSTERONE [Concomitant]
     Dates: start: 20101019
  3. OLMESARTAN MEDOXOMIL [Concomitant]
     Dates: start: 20091211
  4. ESOMEPRAZOLE [Concomitant]
     Dates: start: 20080508
  5. CEVIMELINE [Concomitant]
     Dates: start: 20080610
  6. ROSUVASTATIN [Concomitant]
     Dates: start: 20080610
  7. FENOFIBRATE [Concomitant]
     Dates: start: 20080610
  8. ADVAIR [Concomitant]
     Dates: start: 20080414
  9. CLONIDINE [Concomitant]
     Dates: start: 20101019
  10. ALBUTEROL [Concomitant]
     Dates: start: 20091211
  11. CHLORPROMAZINE [Concomitant]
     Dates: start: 20100602
  12. FLUTICASONE PROPIONATE [Concomitant]
  13. TADALAFIL [Concomitant]
     Dates: start: 20100806
  14. ZOFRAN [Concomitant]
  15. NEBIVOLOL [Concomitant]
     Dates: start: 20091211
  16. LEVOCETIRIZINE DIHYDROCHLORIDE [Concomitant]
     Dates: start: 20090202
  17. PREGABALIN [Concomitant]
     Dates: start: 20071210
  18. ETRAVIRINE [Suspect]
  19. MARAVIROC [Suspect]
     Indication: HIV INFECTION
     Dosage: 600MG TWICE PER DAY
     Route: 048
     Dates: start: 20101118
  20. RALTEGRAVIR [Suspect]
  21. LEVOTHYROXINE [Concomitant]
     Dates: start: 20101019
  22. DECA-DURABOLIN [Concomitant]
     Dates: start: 20090202
  23. BUPROPION [Concomitant]
     Dates: start: 20061011
  24. OXYBUTYNIN [Concomitant]
     Dates: start: 20061011

REACTIONS (2)
  - BLOOD POTASSIUM DECREASED [None]
  - BLOOD CREATINE PHOSPHOKINASE INCREASED [None]
